FAERS Safety Report 23258883 (Version 1)
Quarter: 2023Q4

REPORT INFORMATION
  Report Type: Spontaneous
  Country: CN (occurrence: CN)
  Receive Date: 20231204
  Receipt Date: 20231204
  Transmission Date: 20240109
  Serious: Yes (Life-Threatening)
  Sender: FDA-Public Use
  Company Number: CN-NAPPMUNDI-GBR-2023-0112732

PATIENT
  Age: 67 Year
  Sex: Male
  Weight: 45 kg

DRUGS (1)
  1. MORPHINE SULFATE [Suspect]
     Active Substance: MORPHINE SULFATE
     Indication: Cancer pain
     Dosage: 30 MILLIGRAM, BID
     Route: 048
     Dates: start: 20231031, end: 20231101

REACTIONS (3)
  - Somnolence [Recovering/Resolving]
  - Miosis [Recovering/Resolving]
  - Toxicity to various agents [Recovering/Resolving]

NARRATIVE: CASE EVENT DATE: 20231101
